FAERS Safety Report 6264980-4 (Version None)
Quarter: 2009Q3

REPORT INFORMATION
  Report Type: 
  Country: None (occurrence: None)
  Receive Date: 20090709
  Receipt Date: 20090709
  Transmission Date: 20100115
  Serious: No
  Sender: FDA-Public Use
  Company Number: None

PATIENT
  Sex: Male
  Weight: 93.8946 kg

DRUGS (2)
  1. CARBIDOPA + LEVODOPA [Suspect]
     Dosage: 1 1/2 PILLS EVERY 3 HRS ROUND THE CLOCK 047 ORALLY
     Route: 048
     Dates: start: 20070726
  2. CARBIDOPA + LEVODOPA [Suspect]
     Dosage: 1 1/2 PILLS EVERY 3 HRS ROUND THE CLOCK 047 ORALLY
     Route: 048
     Dates: start: 20070810

REACTIONS (12)
  - DECREASED INTEREST [None]
  - DEPRESSED LEVEL OF CONSCIOUSNESS [None]
  - DRUG EFFECT DECREASED [None]
  - DRUG INEFFECTIVE [None]
  - FEELING ABNORMAL [None]
  - INCORRECT DOSE ADMINISTERED [None]
  - NIGHTMARE [None]
  - PAIN [None]
  - PRODUCT SUBSTITUTION ISSUE [None]
  - SLEEP DISORDER [None]
  - SOMNOLENCE [None]
  - TABLET ISSUE [None]
